FAERS Safety Report 17756526 (Version 1)
Quarter: 2020Q2

REPORT INFORMATION
  Report Type: Spontaneous
  Country: US (occurrence: US)
  Receive Date: 20200507
  Receipt Date: 20200507
  Transmission Date: 20200714
  Serious: Yes (Death, Hospitalization)
  Sender: FDA-Public Use
  Company Number: None

PATIENT
  Age: 59 Year
  Sex: Male
  Weight: 94.1 kg

DRUGS (3)
  1. DEXAMETHASONE. [Suspect]
     Active Substance: DEXAMETHASONE
     Dates: end: 20150702
  2. VELCADE [Suspect]
     Active Substance: BORTEZOMIB
     Dates: end: 20150630
  3. LENALIDOMIDE [Suspect]
     Active Substance: LENALIDOMIDE
     Dates: end: 20150702

REACTIONS (5)
  - Pyrexia [None]
  - Dyspnoea [None]
  - Small cell lung cancer [None]
  - Haemorrhage [None]
  - Metastases to central nervous system [None]

NARRATIVE: CASE EVENT DATE: 20150702
